FAERS Safety Report 23850038 (Version 1)
Quarter: 2024Q2

REPORT INFORMATION
  Report Type: Spontaneous
  Country: US (occurrence: None)
  Receive Date: 20240512
  Receipt Date: 20240512
  Transmission Date: 20240716
  Serious: Yes (Disabling, Other)
  Sender: FDA-Public Use
  Company Number: None

PATIENT
  Age: 36 Year
  Sex: Male
  Weight: 65.25 kg

DRUGS (1)
  1. FINASTERIDE [Suspect]
     Active Substance: FINASTERIDE
     Indication: Androgenetic alopecia
     Dosage: OTHER QUANTITY : 1 TABLET(S);?OTHER FREQUENCY : ONCE PER 3 DAYS;?
     Route: 048

REACTIONS (11)
  - Libido disorder [None]
  - Brain fog [None]
  - Reading disorder [None]
  - Disturbance in attention [None]
  - Bradyphrenia [None]
  - Anhedonia [None]
  - Erectile dysfunction [None]
  - Loss of libido [None]
  - Anorgasmia [None]
  - Testicular pain [None]
  - Blood testosterone increased [None]

NARRATIVE: CASE EVENT DATE: 20220501
